FAERS Safety Report 13539922 (Version 1)
Quarter: 2017Q2

REPORT INFORMATION
  Report Type: Other
  Country: ES (occurrence: ES)
  Receive Date: 20170512
  Receipt Date: 20170512
  Transmission Date: 20170830
  Serious: Yes (Hospitalization, Other)
  Sender: FDA-Public Use
  Company Number: ES-ASTELLAS-2017US017405

PATIENT
  Age: 91 Year
  Sex: Male

DRUGS (1)
  1. XTANDI [Suspect]
     Active Substance: ENZALUTAMIDE
     Indication: PROSTATE CANCER
     Route: 048
     Dates: start: 20170104, end: 20170122

REACTIONS (9)
  - Somnolence [Recovering/Resolving]
  - Pleural effusion [Unknown]
  - Pulmonary embolism [Unknown]
  - Infectious pleural effusion [Unknown]
  - Decreased appetite [Unknown]
  - Pyrexia [Recovering/Resolving]
  - Vertigo [Unknown]
  - Asthenia [Recovering/Resolving]
  - Myopathy [Unknown]

NARRATIVE: CASE EVENT DATE: 20170123
